FAERS Safety Report 24404824 (Version 1)
Quarter: 2024Q4

REPORT INFORMATION
  Report Type: Spontaneous
  Country: CL (occurrence: CL)
  Receive Date: 20241007
  Receipt Date: 20241007
  Transmission Date: 20250114
  Serious: No
  Sender: ROCHE
  Company Number: CL-ROCHE-3537348

PATIENT

DRUGS (1)
  1. GAZYVA [Suspect]
     Active Substance: OBINUTUZUMAB
     Indication: Product used for unknown indication
     Route: 042
     Dates: start: 20240401

REACTIONS (4)
  - Hypertension [Unknown]
  - Oxygen saturation decreased [Unknown]
  - Hyperhidrosis [Unknown]
  - Malaise [Unknown]
